FAERS Safety Report 10202783 (Version 1)
Quarter: 2014Q2

REPORT INFORMATION
  Report Type: Report from Study
  Country: BE (occurrence: BE)
  Receive Date: 20140528
  Receipt Date: 20140528
  Transmission Date: 20141212
  Serious: Yes (Hospitalization)
  Sender: FDA-Public Use
  Company Number: BE-ABBVIE-14P-013-1240254-00

PATIENT
  Age: 34 Year
  Sex: Male

DRUGS (6)
  1. HUMIRA [Suspect]
     Indication: CROHN^S DISEASE
     Dosage: BASELINE
     Route: 058
     Dates: start: 20090826, end: 20090826
  2. HUMIRA [Suspect]
     Dosage: WEEK 2
     Route: 058
  3. HUMIRA [Suspect]
     Route: 058
     Dates: end: 20140129
  4. REMICADE [Concomitant]
     Indication: CROHN^S DISEASE
     Dates: start: 20140308
  5. MEDROL [Concomitant]
     Indication: CROHN^S DISEASE
     Dates: start: 20140204
  6. SOLU-MEDROL [Concomitant]
     Indication: INTESTINAL OBSTRUCTION
     Dates: start: 20140130, end: 20140131

REACTIONS (1)
  - Intestinal obstruction [Recovered/Resolved]
